FAERS Safety Report 4284110-8 (Version None)
Quarter: 2004Q1

REPORT INFORMATION
  Report Type: 
  Country: None (occurrence: None)
  Receive Date: 20040130
  Receipt Date: 20040126
  Transmission Date: 20041129
  Serious: Yes (Disabling, Other)
  Sender: FDA-Public Use
  Company Number: 2003-12-0736

PATIENT
  Age: 8 Year
  Sex: Female

DRUGS (1)
  1. INTERFERON ALFA-2A INJECTABLE POWDER [Suspect]
     Dosage: INTRATHECAL; ONCE
     Route: 037

REACTIONS (1)
  - CEREBRAL ATROPHY [None]
